FAERS Safety Report 8841017 (Version 1)
Quarter: 2012Q4

REPORT INFORMATION
  Report Type: 
  Country: US (occurrence: US)
  Receive Date: 20121015
  Receipt Date: 20121015
  Transmission Date: 20130627
  Serious: Yes (Hospitalization)
  Sender: FDA-Public Use
  Company Number: US-ROCHE-1127220

PATIENT
  Age: 13 Year
  Sex: Male

DRUGS (6)
  1. NUTROPIN [Suspect]
     Indication: FAILURE TO THRIVE
     Route: 065
     Dates: start: 200008
  2. PREDNISONE [Concomitant]
     Dosage: every other day
     Route: 065
  3. VERAPAMIL [Concomitant]
     Route: 065
  4. FK 506 [Concomitant]
     Route: 065
  5. MAGNESIUM OXIDE [Concomitant]
     Route: 065
  6. POLYCITRA-K [Concomitant]
     Dosage: 15 cc
     Route: 065

REACTIONS (1)
  - Pneumonia bacterial [Recovered/Resolved]
